FAERS Safety Report 11661427 (Version 4)
Quarter: 2015Q4

REPORT INFORMATION
  Report Type: Spontaneous
  Country: None (occurrence: US)
  Receive Date: 20151026
  Receipt Date: 20151028
  Transmission Date: 20160304
  Serious: No
  Sender: FDA-Public Use
  Company Number: US-RARE DISEASE THERAPEUTICS, INC.-1043396

PATIENT
  Age: 4 Year
  Sex: Male
  Weight: 22 kg

DRUGS (3)
  1. HYDROXOCOBALAMIN ACETATE. [Concomitant]
     Active Substance: HYDROXOCOBALAMIN ACETATE
  2. LEVOCARNITINE. [Concomitant]
     Active Substance: LEVOCARNITINE
  3. CYSTADANE [Suspect]
     Active Substance: BETAINE
     Route: 048
     Dates: start: 20141119, end: 20150514

REACTIONS (5)
  - Diarrhoea [Unknown]
  - Vomiting [Unknown]
  - Dysgeusia [Unknown]
  - Nausea [Unknown]
  - Refusal of treatment by patient [Unknown]

NARRATIVE: CASE EVENT DATE: 20150510
